FAERS Safety Report 5275008-7 (Version None)
Quarter: 2007Q1

REPORT INFORMATION
  Report Type: 
  Country: None (occurrence: None)
  Receive Date: 20070325
  Receipt Date: 20070314
  Transmission Date: 20070707
  Serious: Yes (Hospitalization)
  Sender: FDA-Public Use
  Company Number: JP-ABBOTT-07P-087-0360101-00

PATIENT
  Sex: Female

DRUGS (4)
  1. LIPIDIL [Suspect]
     Indication: HYPERLIPIDAEMIA
     Route: 048
     Dates: start: 20061226, end: 20070103
  2. LIPIDIL [Suspect]
     Dates: start: 20061125, end: 20061225
  3. LIPIDIL [Suspect]
  4. AMLODIPINE BESYLATE [Concomitant]
     Indication: DRUG USE FOR UNKNOWN INDICATION
     Dates: end: 20070108

REACTIONS (5)
  - ABDOMINAL PAIN UPPER [None]
  - JAUNDICE [None]
  - LIVER DISORDER [None]
  - NAUSEA [None]
  - OCULAR ICTERUS [None]
